FAERS Safety Report 9129940 (Version 3)
Quarter: 2013Q2

REPORT INFORMATION
  Report Type: Spontaneous
  Country: GB (occurrence: GB)
  Receive Date: 20130228
  Receipt Date: 20130507
  Transmission Date: 20140414
  Serious: Yes (Hospitalization)
  Sender: FDA-Public Use
  Company Number: GB-ELI_LILLY_AND_COMPANY-GB201302006217

PATIENT
  Sex: Female

DRUGS (5)
  1. FORSTEO [Suspect]
     Indication: OSTEOPOROSIS
     Dosage: 20 UG, QD
     Route: 058
     Dates: start: 20121221
  2. FORSTEO [Suspect]
     Dosage: 20 UG, ONCE DAILY
     Route: 058
     Dates: start: 20130205, end: 20130214
  3. THYROXINE [Concomitant]
  4. AMLODIPINE [Concomitant]
  5. CO-CODAMOL [Concomitant]

REACTIONS (1)
  - Nephrolithiasis [Recovering/Resolving]
